FAERS Safety Report 5821865-2 (Version None)
Quarter: 2008Q3

REPORT INFORMATION
  Report Type: 
  Country: None (occurrence: None)
  Receive Date: 20080724
  Receipt Date: 20080718
  Transmission Date: 20090109
  Serious: Yes (Hospitalization)
  Sender: FDA-Public Use
  Company Number: NL-ROCHE-570479

PATIENT
  Sex: Female

DRUGS (7)
  1. CAPECITABINE [Suspect]
     Indication: BREAST CANCER
     Dosage: FROM PROTOCOL: 825 MG/M2 2 DAILY ON DAYS 1-14 OF 3 WEEK. LAST DATE OF ADMINISTRATION:15 JUN 2008.
     Route: 048
     Dates: start: 20080418
  2. BEVACIZUMAB [Suspect]
     Indication: BREAST CANCER
     Dosage: FROM PROTOCOL: BEVACIZUMAB 15 MG/KG DAY 1 OF 3 WEEK CYCLE. LAST DATE OF ADMINISTRATION: 06 JUNE 2008
     Route: 042
     Dates: start: 20080418
  3. PACLITAXEL [Suspect]
     Indication: BREAST CANCER
     Dosage: FROM PROTOCOL: 90 MG/M2 I.V. ON DAYS 1 AND DAY 8 OF 3 WEEK .LAST DATE OF ADMINISTRATION: 13 JUN 2008
     Route: 042
     Dates: start: 20080418
  4. FENPROCOUMON [Concomitant]
     Dosage: DOSE REPORTED AS V.A.
     Dates: start: 20080317
  5. PERINDOPRIL ERBUMINE [Concomitant]
     Dates: end: 20080530
  6. METOPROLOL SUCCINATE [Concomitant]
     Dates: start: 20080317
  7. LANOXIN [Concomitant]
     Dosage: STARTED BEFORE STUDY

REACTIONS (2)
  - FEBRILE NEUTROPENIA [None]
  - VESTIBULAR NEURONITIS [None]
